FAERS Safety Report 10144081 (Version 3)
Quarter: 2014Q2

REPORT INFORMATION
  Report Type: Spontaneous
  Country: JP (occurrence: JP)
  Receive Date: 20140430
  Receipt Date: 20140617
  Transmission Date: 20141212
  Serious: Yes (Other)
  Sender: FDA-Public Use
  Company Number: JP-PFIZER INC-2014120291

PATIENT
  Age: 53 Year
  Sex: Female

DRUGS (4)
  1. CELECOX [Suspect]
     Indication: ANALGESIC THERAPY
     Dosage: 400 MG, 1X/DAY
     Route: 048
     Dates: start: 20140331, end: 20140403
  2. TAKEPRON [Suspect]
     Dosage: 15 MG, 1X/DAY
     Route: 048
     Dates: start: 20140331, end: 20140403
  3. FELBINAC [Concomitant]
     Dosage: PLASTER
     Dates: start: 20140403
  4. RAKOOL REISHIPPU [Concomitant]
     Dosage: UNK
     Dates: start: 20140331

REACTIONS (2)
  - Conjunctival haemorrhage [Recovered/Resolved]
  - Intentional overdose [Unknown]
